FAERS Safety Report 5945441-6 (Version None)
Quarter: 2008Q4

REPORT INFORMATION
  Report Type: 
  Country: None (occurrence: None)
  Receive Date: 20081107
  Receipt Date: 20081020
  Transmission Date: 20090506
  Serious: Yes (Hospitalization)
  Sender: FDA-Public Use
  Company Number: JP-ALLERGAN-0813973US

PATIENT
  Sex: Male

DRUGS (3)
  1. GATIFLOXACIN [Suspect]
     Indication: CONJUNCTIVITIS
     Route: 047
     Dates: start: 20081018, end: 20081018
  2. ODOMEL [Concomitant]
     Indication: CONJUNCTIVITIS
     Dates: start: 20081018, end: 20081018
  3. INTAL [Concomitant]
     Indication: DRUG USE FOR UNKNOWN INDICATION

REACTIONS (2)
  - ANAPHYLACTIC REACTION [None]
  - ERYTHEMA [None]
